FAERS Safety Report 6505310-X (Version None)
Quarter: 2009Q4

REPORT INFORMATION
  Report Type: 
  Country: None (occurrence: None)
  Receive Date: 20091218
  Receipt Date: 20091210
  Transmission Date: 20100525
  Serious: Yes (Other)
  Sender: FDA-Public Use
  Company Number: US-JNJFOC-20090709727

PATIENT
  Age: 26 Year
  Sex: Female

DRUGS (3)
  1. ECONAZOLE NITRATE [Suspect]
     Indication: DERMATITIS
     Route: 061
  2. ECONAZOLE NITRATE [Suspect]
     Indication: DRUG USE FOR UNKNOWN INDICATION
     Route: 065
  3. MICONAZOLE [Suspect]
     Indication: DRUG USE FOR UNKNOWN INDICATION
     Route: 065

REACTIONS (2)
  - DRUG HYPERSENSITIVITY [None]
  - DRUG INEFFECTIVE [None]
